FAERS Safety Report 19323285 (Version 1)
Quarter: 2021Q2

REPORT INFORMATION
  Report Type: Spontaneous
  Country: US (occurrence: US)
  Receive Date: 20210528
  Receipt Date: 20210528
  Transmission Date: 20210717
  Serious: Yes (Hospitalization, Other)
  Sender: FDA-Public Use
  Company Number: US-APOTEX-2021AP012636

PATIENT
  Age: 48 Year
  Sex: Female

DRUGS (8)
  1. RANITIDINE. [Concomitant]
     Active Substance: RANITIDINE
     Indication: PRODUCT USED FOR UNKNOWN INDICATION
     Dosage: UNK
     Route: 065
  2. LISINOPRIL. [Interacting]
     Active Substance: LISINOPRIL
     Indication: HYPERTENSION
     Dosage: 40 MILLIGRAM, QD
     Route: 065
  3. BUPROPION. [Concomitant]
     Active Substance: BUPROPION
     Indication: PRODUCT USED FOR UNKNOWN INDICATION
     Dosage: UNK
     Route: 065
  4. INSULIN GLARGINE [Concomitant]
     Active Substance: INSULIN GLARGINE
     Indication: PRODUCT USED FOR UNKNOWN INDICATION
     Dosage: UNK
     Route: 065
  5. METFORMIN [Concomitant]
     Active Substance: METFORMIN HYDROCHLORIDE
     Indication: PRODUCT USED FOR UNKNOWN INDICATION
     Dosage: UNK
     Route: 065
  6. DULOXETINE. [Concomitant]
     Active Substance: DULOXETINE
     Indication: PRODUCT USED FOR UNKNOWN INDICATION
     Dosage: UNK
     Route: 065
  7. LITHIUM CARBONATE. [Suspect]
     Active Substance: LITHIUM CARBONATE
     Indication: BIPOLAR DISORDER
     Dosage: 900 MILLIGRAM, QD (IN THE EVENING)
     Route: 048
  8. ATORVASTATIN [Concomitant]
     Active Substance: ATORVASTATIN
     Indication: PRODUCT USED FOR UNKNOWN INDICATION
     Dosage: UNK
     Route: 065

REACTIONS (17)
  - Hypovolaemia [Recovered/Resolved]
  - Grip strength decreased [Recovered/Resolved]
  - Mucosal dryness [Recovered/Resolved]
  - Antipsychotic drug level increased [Recovered/Resolved]
  - Toxicity to various agents [Recovered/Resolved]
  - Drug interaction [Unknown]
  - Movement disorder [Recovered/Resolved]
  - Vomiting [Recovered/Resolved]
  - Hyponatraemia [Recovered/Resolved]
  - Nausea [Recovered/Resolved]
  - Limb discomfort [Recovered/Resolved]
  - Balance disorder [Recovered/Resolved]
  - Fall [Unknown]
  - Dizziness [Recovered/Resolved]
  - Confusional state [Recovered/Resolved]
  - Acute kidney injury [Recovered/Resolved]
  - Tremor [Recovered/Resolved]
